FAERS Safety Report 11072169 (Version 1)
Quarter: 2015Q2

REPORT INFORMATION
  Report Type: Spontaneous
  Country: US (occurrence: US)
  Receive Date: 20150428
  Receipt Date: 20150428
  Transmission Date: 20150821
  Serious: Yes (Other)
  Sender: FDA-Public Use
  Company Number: US-BAYER-2015-178788

PATIENT
  Sex: Female

DRUGS (1)
  1. BAYER GENUINE ASPIRIN [Suspect]
     Active Substance: ASPIRIN
     Dosage: UNK, UNK

REACTIONS (2)
  - Lung disorder [Recovered/Resolved]
  - Hypersensitivity [Recovered/Resolved]
